FAERS Safety Report 23204681 (Version 2)
Quarter: 2023Q4

REPORT INFORMATION
  Report Type: Spontaneous
  Country: DE (occurrence: DE)
  Receive Date: 20231120
  Receipt Date: 20231124
  Transmission Date: 20240109
  Serious: Yes (Hospitalization)
  Sender: FDA-Public Use
  Company Number: DE-AstraZeneca-2023A260447

PATIENT

DRUGS (2)
  1. SYNAGIS [Suspect]
     Active Substance: PALIVIZUMAB
     Indication: Product used for unknown indication
     Route: 058
  2. SYNAGIS [Suspect]
     Active Substance: PALIVIZUMAB
     Route: 058
     Dates: start: 2023

REACTIONS (1)
  - Respiratory syncytial virus infection [Recovered/Resolved]
